FAERS Safety Report 7811692-9 (Version None)
Quarter: 2011Q4

REPORT INFORMATION
  Report Type: 
  Country: None (occurrence: None)
  Receive Date: 20111013
  Receipt Date: 20111011
  Transmission Date: 20120403
  Serious: Yes (Other)
  Sender: FDA-Public Use
  Company Number: US-SHIRE-ALL1-2011-03847

PATIENT
  Age: 50 Year
  Sex: Female

DRUGS (1)
  1. AGRYLIN [Suspect]
     Indication: PRODUCT USED FOR UNKNOWN INDICATION
     Dosage: 100 MG, ONE DOSE
     Route: 048
     Dates: start: 20111001, end: 20111001

REACTIONS (2)
  - DRUG DIVERSION [None]
  - INTENTIONAL OVERDOSE [None]
